FAERS Safety Report 6982727-0 (Version None)
Quarter: 2010Q3

REPORT INFORMATION
  Report Type: 
  Country: None (occurrence: None)
  Receive Date: 20100914
  Receipt Date: 20100322
  Transmission Date: 20110219
  Serious: No
  Sender: FDA-Public Use
  Company Number: US-PFIZER INC-2010037306

PATIENT
  Sex: Male
  Weight: 97.506 kg

DRUGS (7)
  1. LYRICA [Suspect]
     Indication: PAIN
     Dosage: 50 MG, 2X/DAY
     Route: 048
     Dates: start: 20090601, end: 20091201
  2. LYRICA [Suspect]
     Dosage: 75 MG, 2X/DAY
     Route: 048
     Dates: start: 20091201
  3. OMEPRAZOLE [Concomitant]
     Indication: GASTROOESOPHAGEAL REFLUX DISEASE
     Dosage: UNK
  4. CRESTOR [Concomitant]
     Dosage: 10 MG, UNK
  5. HYDROCHLOROTHIAZIDE [Concomitant]
     Dosage: 12.5 MG, 1X/DAY
  6. ATENOLOL [Concomitant]
     Dosage: 25 MG, UNK
  7. LISINOPRIL [Concomitant]
     Dosage: 40 MG, UNK

REACTIONS (1)
  - PRURITUS [None]
